FAERS Safety Report 21142104 (Version 3)
Quarter: 2022Q3

REPORT INFORMATION
  Report Type: Other
  Country: CA (occurrence: None)
  Receive Date: 20220728
  Receipt Date: 20220816
  Transmission Date: 20221026
  Serious: No
  Sender: FDA-Public Use
  Company Number: CA-ROCHE-3095775

PATIENT
  Age: 39 Year
  Sex: Male

DRUGS (2)
  1. OCREVUS [Suspect]
     Active Substance: OCRELIZUMAB
     Indication: Relapsing-remitting multiple sclerosis
     Dosage: 300 MG AT DAY 0 AND 14, THEN 600 MG EVERY 6 MONTH. CONCENTRATE FOR INTRAVENOUS INFUSION.
     Route: 042
     Dates: start: 20210616
  2. COVID-19 VACCINE NOS [Concomitant]
     Active Substance: COVID-19 VACCINE NOS
     Dosage: PATIENT GOT 3 DOSES, ALL PFIZER

REACTIONS (3)
  - Gout [Recovered/Resolved]
  - SARS-CoV-2 test positive [Unknown]
  - Eustachian tube dysfunction [Unknown]

NARRATIVE: CASE EVENT DATE: 20220726
